FAERS Safety Report 18629263 (Version 1)
Quarter: 2020Q4

REPORT INFORMATION
  Report Type: Spontaneous
  Country: US (occurrence: US)
  Receive Date: 20201217
  Receipt Date: 20201217
  Transmission Date: 20210114
  Serious: Yes (Disabling, Other)
  Sender: FDA-Public Use
  Company Number: US-NAPPMUNDI-USA_2008_0032940

PATIENT
  Sex: Female

DRUGS (15)
  1. DILAUDID [Suspect]
     Active Substance: HYDROMORPHONE HYDROCHLORIDE
     Indication: PRODUCT USED FOR UNKNOWN INDICATION
     Dosage: UNK
     Route: 048
  2. HYSINGLA ER [Suspect]
     Active Substance: HYDROCODONE BITARTRATE
     Indication: PRODUCT USED FOR UNKNOWN INDICATION
     Dosage: UNK
     Route: 048
  3. RYZOLT [Suspect]
     Active Substance: TRAMADOL HYDROCHLORIDE
     Indication: PRODUCT USED FOR UNKNOWN INDICATION
     Dosage: UNK
     Route: 065
  4. ZANAFLEX [Concomitant]
     Active Substance: TIZANIDINE HYDROCHLORIDE
  5. MORPHINE SULFATE EXTENDED-RELEASE TABLETS (RHODES 74-769, 74-862) [Suspect]
     Active Substance: MORPHINE SULFATE
     Indication: PRODUCT USED FOR UNKNOWN INDICATION
     Dosage: UNK
     Route: 048
  6. OXYCONTIN [Suspect]
     Active Substance: OXYCODONE HYDROCHLORIDE
     Indication: SPINAL COLUMN INJURY
     Dosage: UNK
     Dates: start: 20000420, end: 20011118
  7. OXYCODONE HCL CR TABLETS (SIMILAR TO NDA 22-272) [Suspect]
     Active Substance: OXYCODONE HYDROCHLORIDE
     Indication: PRODUCT USED FOR UNKNOWN INDICATION
     Dosage: UNK
     Route: 048
  8. OXYCODONE HCL TABLETS (RHODES 91-490) [Suspect]
     Active Substance: OXYCODONE HYDROCHLORIDE
     Indication: PRODUCT USED FOR UNKNOWN INDICATION
     Dosage: UNK
     Route: 048
  9. BUTRANS [Suspect]
     Active Substance: BUPRENORPHINE
     Indication: PRODUCT USED FOR UNKNOWN INDICATION
     Dosage: UNK
     Route: 062
  10. NEURONTIN [Concomitant]
     Active Substance: GABAPENTIN
  11. HYDROCODONE BITARTRATE AND ACETAMINOPHEN [Suspect]
     Active Substance: ACETAMINOPHEN\HYDROCODONE BITARTRATE
     Indication: PRODUCT USED FOR UNKNOWN INDICATION
     Dosage: UNK
     Route: 048
  12. HYDROMORPHONE TABLETS [Suspect]
     Active Substance: HYDROMORPHONE
     Indication: PRODUCT USED FOR UNKNOWN INDICATION
     Dosage: UNK
     Route: 048
  13. BUPRENORPHINE TRANSDERMAL PATCH [Suspect]
     Active Substance: BUPRENORPHINE
     Indication: PRODUCT USED FOR UNKNOWN INDICATION
     Dosage: UNK
     Route: 062
  14. OXYCODONE/ ACETAMINOPHEN TABLETS [Suspect]
     Active Substance: ACETAMINOPHEN\OXYCODONE HYDROCHLORIDE
     Indication: PRODUCT USED FOR UNKNOWN INDICATION
     Dosage: UNK
     Route: 048
  15. OXYIR [Suspect]
     Active Substance: OXYCODONE HYDROCHLORIDE
     Indication: PRODUCT USED FOR UNKNOWN INDICATION
     Dosage: UNK
     Route: 065

REACTIONS (42)
  - Impaired driving ability [Unknown]
  - Fall [Unknown]
  - Hypertension [None]
  - Road traffic accident [None]
  - Insomnia [Unknown]
  - Headache [Unknown]
  - Eye disorder [None]
  - Drug dependence [Unknown]
  - Neoplasm [None]
  - Anhedonia [Unknown]
  - Thermal burn [Unknown]
  - Dizziness [Unknown]
  - Nausea [Unknown]
  - Hallucination [Unknown]
  - Eye haemorrhage [None]
  - Chest pain [Unknown]
  - Memory impairment [Unknown]
  - Illness [None]
  - Aggression [None]
  - Micturition urgency [None]
  - Gastrointestinal disorder [Unknown]
  - General physical health deterioration [Unknown]
  - Phobia [None]
  - Gastrooesophageal reflux disease [None]
  - Weight increased [None]
  - Trichorrhexis [None]
  - Suicidal ideation [None]
  - Drug abuse [None]
  - Personality change [Unknown]
  - Family stress [Unknown]
  - Anxiety [Unknown]
  - Depression [Unknown]
  - Cardiovascular disorder [None]
  - Disability [None]
  - Mobility decreased [Unknown]
  - Respiratory disorder [None]
  - Flashback [None]
  - Mood swings [Unknown]
  - Female sexual dysfunction [Unknown]
  - Pain [Unknown]
  - Self esteem decreased [None]
  - Rash [None]
